FAERS Safety Report 5917205-0 (Version None)
Quarter: 2008Q4

REPORT INFORMATION
  Report Type: 
  Country: None (occurrence: None)
  Receive Date: 20081009
  Receipt Date: 20080924
  Transmission Date: 20090506
  Serious: Yes (Other)
  Sender: FDA-Public Use
  Company Number: ENT 2008-0162

PATIENT
  Age: 81 Year
  Sex: Male

DRUGS (4)
  1. COMTAN [Suspect]
     Indication: PARKINSON'S DISEASE
     Dosage: 600 MG
  2. PIREBIDIL [Concomitant]
  3. LEVODOPA [Concomitant]
  4. CARBIDOPA [Concomitant]

REACTIONS (3)
  - COLITIS [None]
  - COLON ADENOMA [None]
  - DEPRESSION [None]
